FAERS Safety Report 5382369-7 (Version None)
Quarter: 2007Q3

REPORT INFORMATION
  Report Type: 
  Country: None (occurrence: None)
  Receive Date: 20070709
  Receipt Date: 20070628
  Transmission Date: 20080115
  Serious: No
  Sender: FDA-Public Use
  Company Number: CA-BAXTER-2007BH004514

PATIENT
  Age: 20 Year
  Sex: Male
  Weight: 58 kg

DRUGS (8)
  1. IVEEGAM [Suspect]
     Indication: IMMUNODEFICIENCY
     Route: 042
     Dates: start: 20070511, end: 20070511
  2. IVEEGAM [Suspect]
     Dosage: DOSE UNIT:UNKNOWN
     Route: 042
     Dates: start: 20070511
  3. PREDNISONE [Concomitant]
     Indication: DRUG USE FOR UNKNOWN INDICATION
     Route: 065
  4. PENTASA - SLOW RELEASE [Concomitant]
     Indication: DRUG USE FOR UNKNOWN INDICATION
     Route: 048
  5. IMURAN [Concomitant]
     Indication: DRUG USE FOR UNKNOWN INDICATION
     Route: 065
  6. LOSEC                                   /CAN/ [Concomitant]
     Indication: DRUG USE FOR UNKNOWN INDICATION
     Route: 048
  7. HYDRODIURIL [Concomitant]
     Indication: DRUG USE FOR UNKNOWN INDICATION
     Route: 065
  8. SOLU-CORTEF [Concomitant]
     Indication: DRUG USE FOR UNKNOWN INDICATION
     Route: 042

REACTIONS (3)
  - ANAPHYLACTIC REACTION [None]
  - ANXIETY [None]
  - CHEST DISCOMFORT [None]
